FAERS Safety Report 15362324 (Version 8)
Quarter: 2021Q2

REPORT INFORMATION
  Report Type: Report from Study
  Country: DE (occurrence: DE)
  Receive Date: 20180907
  Receipt Date: 20210416
  Transmission Date: 20210716
  Serious: Yes (Hospitalization)
  Sender: FDA-Public Use
  Company Number: DE-SA-2018SA061473

PATIENT
  Age: 39 Year
  Sex: Female
  Weight: 82 kg

DRUGS (47)
  1. DEKRISTOL [Concomitant]
     Active Substance: CHOLECALCIFEROL
     Dosage: 20000 IU
     Route: 048
     Dates: start: 20170207
  2. ACICLOVIR [Concomitant]
     Active Substance: ACYCLOVIR
     Dosage: 1 ? 0 ? 1 ?10 IU
     Route: 048
     Dates: start: 20170221, end: 20170321
  3. AERIUS (DESLORATADINE) [Concomitant]
     Active Substance: DESLORATADINE
     Dosage: 5 MG 1 ? 0 ? 0 ? 0 IU,
     Route: 048
     Dates: start: 20170221, end: 20170225
  4. THIAMAZOLE [Concomitant]
     Active Substance: METHIMAZOLE
     Indication: HYPERTHYROIDISM
     Dosage: 10 MG 0 ? 0 ? 1 IU
     Route: 048
     Dates: start: 20180220
  5. ALEMTUZUMAB [Suspect]
     Active Substance: ALEMTUZUMAB
     Dosage: 12 MG
     Route: 041
     Dates: start: 20160215, end: 20160219
  6. ACICLOVIR [Concomitant]
     Active Substance: ACYCLOVIR
     Indication: PROPHYLAXIS
     Dosage: 200 MG IU
     Route: 048
     Dates: start: 20160214, end: 20160314
  7. BACLOFEN. [Concomitant]
     Active Substance: BACLOFEN
     Indication: MUSCLE SPASTICITY
     Dosage: 2.5 MG IU
     Route: 048
     Dates: start: 20201230, end: 20210331
  8. LAMOTRIGINE. [Concomitant]
     Active Substance: LAMOTRIGINE
     Indication: EPILEPSY
     Dosage: 50 MG, BID
     Route: 048
     Dates: start: 20050101
  9. ZOPICLONE [Concomitant]
     Active Substance: ZOPICLONE
     Dosage: 7.5 MG IU, IF NEEDED ? TO 1 TABLE
     Route: 048
     Dates: start: 20160429
  10. TIZANIDINE. [Concomitant]
     Active Substance: TIZANIDINE
     Indication: MUSCLE SPASTICITY
     Dosage: 2 MG, 1?1?1?1/2
     Route: 048
     Dates: start: 20171124
  11. SODIUM CHLORIDE. [Concomitant]
     Active Substance: SODIUM CHLORIDE
     Dosage: 200 ML / H IU
     Route: 042
     Dates: start: 20170222, end: 20170225
  12. CIPRALEX [Concomitant]
     Active Substance: ESCITALOPRAM OXALATE
     Indication: DEPRESSED MOOD
     Dosage: 5 MG IU
     Route: 048
     Dates: start: 20160728, end: 20161028
  13. MONO EMBOLEX [Concomitant]
     Active Substance: CERTOPARIN SODIUM
     Dosage: 3,000 IU / D IU
     Route: 058
     Dates: start: 20170221, end: 20170223
  14. SALBUTAMOL [Concomitant]
     Active Substance: ALBUTEROL
     Indication: ASTHMA
     Dosage: UNK
     Route: 048
  15. ZOPICLONE [Concomitant]
     Active Substance: ZOPICLONE
     Dosage: 7.5 MG,HS
     Route: 048
     Dates: start: 20160429
  16. SPASMEX [TROSPIUM CHLORIDE] [Concomitant]
     Active Substance: TROSPIUM CHLORIDE
     Indication: MUSCLE SPASTICITY
     Dosage: 15 MG, QD
     Route: 048
     Dates: start: 20170220, end: 20171124
  17. SPASMEX [TROSPIUM CHLORIDE] [Concomitant]
     Active Substance: TROSPIUM CHLORIDE
     Dosage: 15 MG 0 ? 0 ? 1 IU
     Route: 048
     Dates: start: 20170220, end: 20171124
  18. SATIVEX [Concomitant]
     Active Substance: NABIXIMOLS
     Indication: MUSCLE SPASTICITY
     Dosage: 8 DF, PRN
     Route: 048
     Dates: start: 20190325
  19. METHYLPREDNISOLONE. [Concomitant]
     Active Substance: METHYLPREDNISOLONE
     Indication: RASH
     Dosage: 500 MG IU
     Route: 042
     Dates: start: 20160202, end: 20160218
  20. IBUPROFEN. [Concomitant]
     Active Substance: IBUPROFEN
     Indication: PROPHYLAXIS
     Dosage: 400 MG IU
     Route: 042
     Dates: start: 20160216, end: 20160221
  21. IBUPROFEN. [Concomitant]
     Active Substance: IBUPROFEN
     Indication: PAIN PROPHYLAXIS
  22. RANITIDINE. [Concomitant]
     Active Substance: RANITIDINE
     Indication: PROPHYLAXIS
     Dosage: 300 MG IU,
     Route: 048
     Dates: start: 20160214, end: 20160219
  23. MONO EMBOLEX [Concomitant]
     Active Substance: CERTOPARIN SODIUM
     Indication: THROMBOSIS PROPHYLAXIS
     Dosage: 3,000 IU / D IU,
     Route: 058
     Dates: start: 20160214, end: 20160219
  24. ANAESTHESULF [POLIDOCANOL] [Concomitant]
     Indication: HERPES ZOSTER
     Dosage: 8 G / 100 G IU
     Route: 003
     Dates: start: 20180816, end: 20180830
  25. LAMOTRIGINE. [Concomitant]
     Active Substance: LAMOTRIGINE
     Dosage: 50 MG IU
     Route: 048
     Dates: start: 20050101
  26. BALDRIAN [VALERIANA OFFICINALIS] [Concomitant]
     Active Substance: VALERIAN
     Indication: SLEEP DISORDER
     Dosage: UNK, PRN
     Route: 048
     Dates: start: 20160729
  27. BALDRIAN [VALERIANA OFFICINALIS] [Concomitant]
     Active Substance: VALERIAN
     Indication: SLEEP DISORDER
     Dosage: 5 MG IU
     Route: 048
     Dates: start: 20160729
  28. LEVOTHYROXINE SODIUM. [Concomitant]
     Active Substance: LEVOTHYROXINE SODIUM
     Indication: HYPOTHYROIDISM
     Dosage: 75 UG,QD
     Route: 048
     Dates: start: 20161122, end: 20171124
  29. METHYLPREDNISOLONE. [Concomitant]
     Active Substance: METHYLPREDNISOLONE
     Indication: PREMEDICATION
     Dosage: 1000 MG IU
     Route: 042
     Dates: start: 20160214, end: 20160219
  30. PARACETAMOL [Concomitant]
     Active Substance: ACETAMINOPHEN
     Dosage: 10 MG / ML 1000 MG IU
     Route: 042
     Dates: start: 20170222, end: 20170225
  31. LEVOTHYROXINE. [Concomitant]
     Active Substance: LEVOTHYROXINE
     Dosage: 75 UG IU
     Route: 048
     Dates: start: 20161122, end: 20171124
  32. ORTHOMOL IMMUN [Concomitant]
     Active Substance: IRON\MINERALS\VITAMINS
     Indication: SUPPLEMENTATION THERAPY
     Route: 048
     Dates: start: 20160212
  33. DEKRISTOL [Concomitant]
     Active Substance: CHOLECALCIFEROL
     Indication: VITAMIN D DEFICIENCY
     Dosage: 20000 IU,QW
     Route: 048
     Dates: start: 20170207
  34. SPASMEX [TROSPIUM CHLORIDE] [Concomitant]
     Active Substance: TROSPIUM CHLORIDE
     Dosage: 1 ? 0 ? 1 ? 0 IU
     Route: 048
     Dates: start: 20190325
  35. SATIVEX [Concomitant]
     Active Substance: NABIXIMOLS
     Dosage: 8 PUFFS MAXIMUM, 4?MORNINGS, THEN AS NEEDED IU
     Route: 048
     Dates: start: 20190325
  36. AERIUS (DESLORATADINE) [Concomitant]
     Active Substance: DESLORATADINE
     Indication: PROPHYLAXIS
     Dosage: 5 MG IU
     Route: 048
     Dates: start: 20160214, end: 20160219
  37. ALEMTUZUMAB [Suspect]
     Active Substance: ALEMTUZUMAB
     Indication: MULTIPLE SCLEROSIS
     Dosage: 12 MG
     Route: 041
     Dates: start: 20170222, end: 20170224
  38. ORTHOMOL IMMUN [Concomitant]
     Active Substance: IRON\MINERALS\VITAMINS
     Indication: NUTRITIONAL SUPPLEMENTATION
     Dosage: UNK, QD
     Route: 048
     Dates: start: 20160212
  39. ACICLOVIR [Concomitant]
     Active Substance: ACYCLOVIR
     Dosage: UNKNOWN IU
     Route: 048
     Dates: start: 20180816, end: 20180830
  40. PARACETAMOL [Concomitant]
     Active Substance: ACETAMINOPHEN
     Indication: PROPHYLAXIS
     Dosage: SHORT INFUSION IU
     Route: 042
     Dates: start: 20160214, end: 20160219
  41. NEUREXAN [Concomitant]
     Active Substance: HOMEOPATHICS
     Indication: DEPRESSED MOOD
     Route: 048
     Dates: start: 20200523
  42. SALBUTAMOL [Concomitant]
     Active Substance: ALBUTEROL
     Dosage: UNK
  43. SALBUTAMOL [Concomitant]
     Active Substance: ALBUTEROL
     Dosage: IF NEEDED
     Route: 048
  44. TIZANIDINE. [Concomitant]
     Active Substance: TIZANIDINE
     Dosage: 2 MG 1 ? 1 ? 1 ? ? IU
     Route: 048
     Dates: start: 20171124
  45. URBASON [METHYLPREDNISOLONE] [Concomitant]
     Active Substance: METHYLPREDNISOLONE
     Indication: PROPHYLAXIS
     Dosage: 1000 MG /D IU
     Route: 042
     Dates: start: 20170222, end: 20170225
  46. SODIUM CHLORIDE. [Concomitant]
     Active Substance: SODIUM CHLORIDE
     Dosage: 154 IU
     Route: 042
     Dates: start: 20160214, end: 20160219
  47. RANITIC [Concomitant]
     Active Substance: RANITIDINE HYDROCHLORIDE
     Indication: PROPHYLAXIS
     Dosage: 300 MG 1 ? 0 ? 1 ?0 IU
     Route: 048
     Dates: start: 20170221, end: 20170225

REACTIONS (7)
  - Herpes zoster [Unknown]
  - Hyperthyroidism [Not Recovered/Not Resolved]
  - Dizziness [Unknown]
  - Urinary tract infection [Recovered/Resolved]
  - Herpes zoster [Recovered/Resolved]
  - Muscle spasticity [Not Recovered/Not Resolved]
  - Anal incontinence [Unknown]

NARRATIVE: CASE EVENT DATE: 20171124
